FAERS Safety Report 6022916-5 (Version None)
Quarter: 2008Q4

REPORT INFORMATION
  Report Type: 
  Country: None (occurrence: None)
  Receive Date: 20081223
  Receipt Date: 20081211
  Transmission Date: 20090506
  Serious: No
  Sender: FDA-Public Use
  Company Number: 004892

PATIENT
  Age: 40 Year
  Sex: Female
  Weight: 53 kg

DRUGS (4)
  1. PLETAL [Suspect]
     Indication: CEREBRAL INFARCTION
     Dosage: 50 MG, BID
     Route: 048
     Dates: start: 20080813, end: 20080827
  2. ERIL (FASUDIL HYDROCHLORIDE) INJECTION, 30 MG [Suspect]
     Indication: CEREBRAL INFARCTION
     Dosage: 30 MG, BID
     Route: 041
     Dates: start: 20080804, end: 20080818
  3. XACLOT (OZAGREL SODIUM) INJECTION [Suspect]
     Indication: CEREBRAL INFARCTION
     Dosage: 40 MG, QD; IV DRIP
     Route: 041
     Dates: start: 20080808, end: 20080821
  4. RADICUT (EDARAVONE) INJECTION [Concomitant]

REACTIONS (1)
  - HAEMORRHAGIC CEREBRAL INFARCTION [None]
